FAERS Safety Report 8297071-1 (Version None)
Quarter: 2012Q1

REPORT INFORMATION
  Report Type: 
  Country: None (occurrence: None)
  Receive Date: 20120322
  Receipt Date: 20120106
  Transmission Date: 20120608
  Serious: Yes (Hospitalization)
  Sender: FDA-Public Use
  Company Number: UTC-014402

PATIENT
  Age: 40 Year
  Sex: Female
  Weight: 64.55 kg

DRUGS (3)
  1. TYVASO [Suspect]
     Indication: COR PULMONALE CHRONIC
     Dosage: 24 MCG (6 MCG,4 IN 1 D), INHALATION
     Route: 055
     Dates: start: 20110520
  2. REVATIO (SILDENAFIL CIRTRATE) [Concomitant]
  3. OXYGEN (OXYGEN) [Concomitant]

REACTIONS (3)
  - DRUG DOSE OMISSION [None]
  - PULMONARY ARTERIAL HYPERTENSION [None]
  - SYNCOPE [None]
